FAERS Safety Report 12678562 (Version 1)
Quarter: 2016Q3

REPORT INFORMATION
  Report Type: Spontaneous
  Country: US (occurrence: US)
  Receive Date: 20160823
  Receipt Date: 20160823
  Transmission Date: 20161109
  Serious: No
  Sender: FDA-Public Use
  Company Number: US-PFIZER INC-2016396527

PATIENT
  Age: 86 Year
  Sex: Female
  Weight: 39 kg

DRUGS (3)
  1. CENTRUM SPECIALIST HEART [Suspect]
     Active Substance: MINERALS\PHYTOSTEROLS\VITAMINS
     Indication: VITAMIN SUPPLEMENTATION
     Dosage: 1 DF, 1X/DAY
     Route: 048
     Dates: end: 20160819
  2. SYNTHROID [Concomitant]
     Active Substance: LEVOTHYROXINE SODIUM
     Indication: THYROID DISORDER
     Dosage: 12.5 UG, 1X/DAY IN THE MORNING
     Route: 048
     Dates: start: 1989
  3. LATANOPROST. [Suspect]
     Active Substance: LATANOPROST
     Indication: GLAUCOMA
     Dosage: LOWEST DOSE, ONCE AT NIGHT, ON BOTH EYES
     Route: 047
     Dates: start: 2015, end: 20160717

REACTIONS (4)
  - Intentional product misuse [Unknown]
  - Hypotension [Not Recovered/Not Resolved]
  - Malaise [Recovering/Resolving]
  - Weight decreased [Unknown]

NARRATIVE: CASE EVENT DATE: 20160717
